FAERS Safety Report 8193160-0 (Version None)
Quarter: 2012Q1

REPORT INFORMATION
  Report Type: 
  Country: None (occurrence: None)
  Receive Date: 20120221
  Receipt Date: 20111209
  Transmission Date: 20120608
  Serious: No
  Sender: FDA-Public Use
  Company Number: 047495

PATIENT
  Sex: Female

DRUGS (1)
  1. LACOSAMIDE [Suspect]
     Dosage: (INTRAVENOUS (NOT OTHERWISE SPECIFIED))
     Route: 042

REACTIONS (1)
  - TACHYCARDIA [None]
